FAERS Safety Report 21225327 (Version 10)
Quarter: 2023Q1

REPORT INFORMATION
  Report Type: Report from Study
  Country: US (occurrence: US)
  Receive Date: 20220817
  Receipt Date: 20230302
  Transmission Date: 20230417
  Serious: Yes (Life-Threatening, Hospitalization, Disabling, Other)
  Sender: FDA-Public Use
  Company Number: US-BRISTOL-MYERS SQUIBB COMPANY-2022-089024

PATIENT
  Age: 81 Year
  Sex: Male
  Weight: 97 kg

DRUGS (20)
  1. CALCIUM CARBONATE [Concomitant]
     Active Substance: CALCIUM CARBONATE
     Indication: Dyspepsia
     Route: 048
     Dates: start: 20220809, end: 20220811
  2. LISINOPRIL [Concomitant]
     Active Substance: LISINOPRIL
     Indication: Product used for unknown indication
     Route: 048
     Dates: start: 2015
  3. ERGOCALCIFEROL [Concomitant]
     Active Substance: ERGOCALCIFEROL
     Indication: Product used for unknown indication
     Dosage: DOSE: 2000 UNITS NOS
     Route: 048
     Dates: start: 20110524
  4. LIDOCAINE VISCOUS [Concomitant]
     Active Substance: LIDOCAINE HYDROCHLORIDE
     Indication: Mucosal inflammation
     Route: 048
     Dates: start: 20220722
  5. SIMVASTATIN [Concomitant]
     Active Substance: SIMVASTATIN
     Indication: Product used for unknown indication
     Route: 048
     Dates: start: 20110324
  6. ANORO ELLIPTA [Concomitant]
     Active Substance: UMECLIDINIUM BROMIDE\VILANTEROL TRIFENATATE
     Indication: Product used for unknown indication
     Route: 055
     Dates: start: 20171117
  7. LEVOTHYROXINE SODIUM [Concomitant]
     Active Substance: LEVOTHYROXINE SODIUM
     Indication: Product used for unknown indication
     Dosage: DOSE: 100 UNITS NOS
     Route: 048
     Dates: start: 20220428, end: 20221117
  8. PREDNISONE [Concomitant]
     Active Substance: PREDNISONE
     Indication: Mucosal inflammation
     Route: 048
     Dates: start: 20220719, end: 20220726
  9. PREDNISONE [Concomitant]
     Active Substance: PREDNISONE
     Indication: Rash
     Route: 048
     Dates: start: 20220726, end: 20220730
  10. PREDNISONE [Concomitant]
     Active Substance: PREDNISONE
     Route: 048
     Dates: start: 20220731, end: 20220804
  11. PREDNISONE [Concomitant]
     Active Substance: PREDNISONE
     Route: 048
     Dates: start: 20220805, end: 20220809
  12. HYDROMORPHONE [Concomitant]
     Active Substance: HYDROMORPHONE
     Indication: Pain
     Route: 042
     Dates: start: 20220809, end: 20220811
  13. NALOXONE [Concomitant]
     Active Substance: NALOXONE
     Indication: Prophylaxis
     Route: 042
     Dates: start: 20220809, end: 20220811
  14. ONDANSETRON [Concomitant]
     Active Substance: ONDANSETRON
     Indication: Prophylaxis
     Route: 042
     Dates: start: 20220809, end: 20220811
  15. ONDANSETRON [Concomitant]
     Active Substance: ONDANSETRON
     Route: 060
     Dates: start: 20220809, end: 20220811
  16. OXYCODONE [Concomitant]
     Active Substance: OXYCODONE
     Indication: Pain
     Route: 048
     Dates: start: 20220809, end: 20220811
  17. POLYETHYLENE GLYCOLS [Concomitant]
     Active Substance: POLYETHYLENE GLYCOLS
     Indication: Prophylaxis
     Route: 048
     Dates: start: 20220809, end: 20220811
  18. SODIUM CHLORIDE [Concomitant]
     Active Substance: SODIUM CHLORIDE
     Indication: Product used for unknown indication
     Route: 042
     Dates: start: 20220809, end: 20220811
  19. SODIUM CHLORIDE [Concomitant]
     Active Substance: SODIUM CHLORIDE
     Dosage: SODIUM CHLORIDE 0.9%
     Route: 042
     Dates: start: 20220809, end: 20220811
  20. BENZOCAINE-MENTHOL [Concomitant]
     Indication: Product used for unknown indication
     Dosage: DOSE: 12 UNITS NOS
     Route: 048
     Dates: start: 20220809, end: 20220811

REACTIONS (1)
  - Pemphigoid [Recovering/Resolving]

NARRATIVE: CASE EVENT DATE: 20220809
